FAERS Safety Report 9848649 (Version 1)
Quarter: 2013Q4

REPORT INFORMATION
  Report Type: Spontaneous
  Country: US (occurrence: None)
  Receive Date: 20131224
  Receipt Date: 20131224
  Transmission Date: 20140711
  Serious: No
  Sender: FDA-Public Use
  Company Number: PHEH2013US003177

PATIENT
  Age: 74 Year
  Sex: Female

DRUGS (1)
  1. FEMARA [Suspect]
     Indication: OESTROGEN RECEPTOR POSITIVE BREAST CANCER
     Dosage: UNK , QD

REACTIONS (4)
  - Depression [None]
  - Musculoskeletal stiffness [None]
  - Pain in extremity [None]
  - Arthralgia [None]
